FAERS Safety Report 17983093 (Version 7)
Quarter: 2020Q4

REPORT INFORMATION
  Report Type: Spontaneous
  Country: US (occurrence: US)
  Receive Date: 20200706
  Receipt Date: 20201012
  Transmission Date: 20210113
  Serious: No
  Sender: FDA-Public Use
  Company Number: US-PFIZER INC-2020256567

PATIENT
  Age: 47 Year
  Sex: Female

DRUGS (2)
  1. IBRANCE [Suspect]
     Active Substance: PALBOCICLIB
     Dosage: 125 MG, CYCLIC (DAILY FOR 21 DAYS ON, 7 DAYS OFF ON A 28 DAY CYCLE)
     Dates: start: 20200928
  2. IBRANCE [Suspect]
     Active Substance: PALBOCICLIB
     Indication: BREAST CANCER FEMALE
     Dosage: 125 MG, CYCLIC (DAILY FOR 21 DAYS ON, 7 DAYS OFF ON A 28 DAY CYCLE)
     Dates: start: 20200619, end: 20200925

REACTIONS (8)
  - Nausea [Recovering/Resolving]
  - Dehydration [Unknown]
  - Neoplasm progression [Unknown]
  - Insomnia [Unknown]
  - Peripheral swelling [Unknown]
  - Dry skin [Recovering/Resolving]
  - Constipation [Unknown]
  - Fatigue [Not Recovered/Not Resolved]

NARRATIVE: CASE EVENT DATE: 20200620
